FAERS Safety Report 15409374 (Version 1)
Quarter: 2018Q3

REPORT INFORMATION
  Report Type: Spontaneous
  Country: GB (occurrence: GB)
  Receive Date: 20180920
  Receipt Date: 20180920
  Transmission Date: 20181010
  Serious: Yes (Life-Threatening)
  Sender: FDA-Public Use
  Company Number: GB-SA-2018SA219102

PATIENT
  Age: 43 Year
  Sex: Female
  Weight: 95.25 kg

DRUGS (4)
  1. HUMAN ACTRAPID [Concomitant]
     Active Substance: INSULIN HUMAN
  2. METFORMIN HYDROCHLORIDE. [Concomitant]
     Active Substance: METFORMIN HYDROCHLORIDE
  3. VITAMIN B12 [COBAMAMIDE] [Concomitant]
  4. TOUJEO [Suspect]
     Active Substance: INSULIN GLARGINE
     Dosage: 52
     Route: 051
     Dates: start: 20180709, end: 20180711

REACTIONS (2)
  - Product substitution issue [Unknown]
  - Hypoglycaemia unawareness [Recovered/Resolved]

NARRATIVE: CASE EVENT DATE: 20180710
